FAERS Safety Report 4777873-6 (Version None)
Quarter: 2005Q3

REPORT INFORMATION
  Report Type: 
  Country: None (occurrence: None)
  Receive Date: 20050926
  Receipt Date: 20050920
  Transmission Date: 20060218
  Serious: Yes (Life-Threatening, Hospitalization)
  Sender: FDA-Public Use
  Company Number: AU-BOEHRINGER INGELHEIM PHARMACEUTICALS, INC.-2005-BP-16629AU

PATIENT
  Sex: Female
  Weight: 60 kg

DRUGS (9)
  1. MOBIC [Suspect]
     Indication: PAIN
     Route: 048
     Dates: start: 20041015, end: 20050417
  2. SOLPRIN [Suspect]
     Route: 048
     Dates: end: 20050417
  3. AMARYL [Concomitant]
     Indication: DIABETES MELLITUS
  4. ENALAPRIL [Concomitant]
     Indication: ESSENTIAL HYPERTENSION
  5. ISOPTIN [Concomitant]
     Indication: ESSENTIAL HYPERTENSION
  6. PRAVACHOL [Concomitant]
     Indication: METABOLIC DISORDER
  7. SINEQUAN [Concomitant]
     Indication: DEPRESSION
  8. SEREPAX [Concomitant]
  9. CALTRATE [Concomitant]

REACTIONS (3)
  - ABDOMINAL PAIN UPPER [None]
  - DUODENAL ULCER [None]
  - DUODENAL ULCER PERFORATION [None]
